FAERS Safety Report 4721265-2 (Version None)
Quarter: 2005Q3

REPORT INFORMATION
  Report Type: 
  Country: None (occurrence: None)
  Receive Date: 20050720
  Receipt Date: 20050707
  Transmission Date: 20060218
  Serious: Yes (Hospitalization)
  Sender: FDA-Public Use
  Company Number: 2005RR-00582

PATIENT
  Sex: Male
  Weight: 63 kg

DRUGS (1)
  1. ISOTRETINOIN [Suspect]
     Indication: ACNE
     Dosage: 20 MG, QD, ORAL
     Route: 048
     Dates: start: 20050418, end: 20050519

REACTIONS (8)
  - BUNDLE BRANCH BLOCK [None]
  - DIZZINESS [None]
  - ELECTROCARDIOGRAM PR SHORTENED [None]
  - HEADACHE [None]
  - MOVEMENT DISORDER [None]
  - PANIC DISORDER [None]
  - SYNCOPE [None]
  - TACHYCARDIA [None]
